FAERS Safety Report 25119618 (Version 2)
Quarter: 2025Q2

REPORT INFORMATION
  Report Type: Spontaneous
  Country: CN (occurrence: CN)
  Receive Date: 20250325
  Receipt Date: 20250608
  Transmission Date: 20250716
  Serious: Yes (Death, Life-Threatening, Hospitalization)
  Sender: COHERUS
  Company Number: CN-SHANGHAI JUNSHI BIOSCIENCES CO., LTD.-CN2025013492

PATIENT

DRUGS (3)
  1. TORIPALIMAB [Suspect]
     Active Substance: TORIPALIMAB
     Indication: Lung adenocarcinoma
     Route: 041
     Dates: start: 20240903, end: 20241018
  2. PEMETREXED [Concomitant]
     Active Substance: PEMETREXED
     Indication: Lung adenocarcinoma
     Route: 041
     Dates: start: 20240903, end: 20241018
  3. CISPLATIN [Concomitant]
     Active Substance: CISPLATIN
     Indication: Lung adenocarcinoma
     Route: 041
     Dates: start: 20240903, end: 20241018

REACTIONS (10)
  - Electrolyte imbalance [Unknown]
  - Anaemia [Unknown]
  - Platelet count decreased [Unknown]
  - Hypoproteinaemia [Unknown]
  - Hepatic failure [Fatal]
  - Coagulopathy [Unknown]
  - Intra-abdominal fluid collection [Unknown]
  - Haemangioma of liver [Unknown]
  - Splenomegaly [Unknown]
  - Off label use [Unknown]

NARRATIVE: CASE EVENT DATE: 20240903
